FAERS Safety Report 12704763 (Version 5)
Quarter: 2017Q2

REPORT INFORMATION
  Report Type: Report from Study
  Country: US (occurrence: US)
  Receive Date: 20160831
  Receipt Date: 20170620
  Transmission Date: 20170830
  Serious: Yes (Death, Hospitalization, Other)
  Sender: FDA-Public Use
  Company Number: US-ACTELION-A-NJ2016-141478

PATIENT
  Age: 69 Year
  Sex: Female
  Weight: 74.83 kg

DRUGS (4)
  1. UPTRAVI [Suspect]
     Active Substance: SELEXIPAG
     Dosage: 600 MCG, BID
     Route: 048
     Dates: start: 20160725
  2. XARELTO [Concomitant]
     Active Substance: RIVAROXABAN
  3. RIOCIGUAT [Concomitant]
     Active Substance: RIOCIGUAT
  4. UPTRAVI [Suspect]
     Active Substance: SELEXIPAG
     Indication: PULMONARY HYPERTENSION
     Dosage: 800 MCG, BID
     Route: 048
     Dates: start: 20160725

REACTIONS (11)
  - Pulmonary hypertension [Fatal]
  - Arthralgia [Recovering/Resolving]
  - Headache [Unknown]
  - Upper limb fracture [Unknown]
  - Dyspepsia [Unknown]
  - Tenderness [Unknown]
  - Disease progression [Fatal]
  - Pain in jaw [Unknown]
  - Fall [Unknown]
  - Insomnia [Unknown]
  - Myalgia [Recovering/Resolving]
